FAERS Safety Report 10328001 (Version 1)
Quarter: 2014Q3

REPORT INFORMATION
  Report Type: Spontaneous
  Country: US (occurrence: US)
  Receive Date: 20140721
  Receipt Date: 20140721
  Transmission Date: 20150326
  Serious: No
  Sender: FDA-Public Use
  Company Number: US-ASTRAZENECA-2014SE50174

PATIENT
  Age: 8 Year
  Sex: Male

DRUGS (1)
  1. PULMICORT FLEXHALER [Suspect]
     Active Substance: BUDESONIDE
     Indication: ASTHMA
     Dosage: 90 MCG, 2 PFFS TWO TIMES A DAY
     Route: 055
     Dates: start: 20140321

REACTIONS (2)
  - Drug dose omission [Unknown]
  - Asthma [Unknown]
